FAERS Safety Report 17469239 (Version 2)
Quarter: 2020Q1

REPORT INFORMATION
  Report Type: Report from Study
  Country: US (occurrence: US)
  Receive Date: 20200227
  Receipt Date: 20200304
  Transmission Date: 20200409
  Serious: Yes (Other)
  Sender: FDA-Public Use
  Company Number: US-GILEAD-2020-0451893

PATIENT
  Age: 71 Year
  Sex: Female

DRUGS (25)
  1. DIVALPREX [Concomitant]
  2. OXYBUTYNIN. [Concomitant]
     Active Substance: OXYBUTYNIN CHLORIDE
  3. TOPIRAMATE. [Concomitant]
     Active Substance: TOPIRAMATE
  4. TRIAMCINOLON [TRIAMCINOLONE ACETONIDE] [Concomitant]
  5. BUDESONIDE. [Concomitant]
     Active Substance: BUDESONIDE
  6. INCRUSE ELLIPTA [Concomitant]
     Active Substance: UMECLIDINIUM BROMIDE
  7. IPRATROPIUM/ALBUTEROL [Concomitant]
     Active Substance: ALBUTEROL\IPRATROPIUM
  8. PROBIOTICS NOS [Concomitant]
     Active Substance: PROBIOTICS NOS
  9. AZTREONAM LYSINE [Suspect]
     Active Substance: AZTREONAM LYSINE
     Indication: CYSTIC FIBROSIS
     Dosage: 75 MG, TID
     Route: 055
  10. FUROSEMIDE. [Concomitant]
     Active Substance: FUROSEMIDE
  11. DAPSONE. [Concomitant]
     Active Substance: DAPSONE
  12. DOK [Concomitant]
     Active Substance: DOCUSATE SODIUM
  13. FOLIC ACID. [Concomitant]
     Active Substance: FOLIC ACID
  14. MONTELUKAST [Concomitant]
     Active Substance: MONTELUKAST SODIUM
  15. OMEPRAZOLE. [Concomitant]
     Active Substance: OMEPRAZOLE
  16. VIRTUSSIN AC [Concomitant]
     Active Substance: CODEINE PHOSPHATE\GUAIFENESIN
  17. PREDNISONE. [Concomitant]
     Active Substance: PREDNISONE
  18. DULERA [Concomitant]
     Active Substance: FORMOTEROL FUMARATE DIHYDRATE\MOMETASONE FUROATE
  19. FLORASTOR [LACTOBACILLUS ACIDOPHILUS] [Concomitant]
  20. FLOVENT [Concomitant]
     Active Substance: FLUTICASONE PROPIONATE
  21. FLUOXETINE [Concomitant]
     Active Substance: FLUOXETINE HYDROCHLORIDE
  22. PERMETHRIN. [Concomitant]
     Active Substance: PERMETHRIN
  23. AZTREONAM LYSINE [Suspect]
     Active Substance: AZTREONAM LYSINE
     Indication: BRONCHIECTASIS
     Dosage: 75 MG, QD
     Route: 055
  24. LEVOFLOXACIN. [Concomitant]
     Active Substance: LEVOFLOXACIN
  25. AMOXCLAV [AMOXICILLIN TRIHYDRATE;CLAVULANATE POTASSIUM] [Concomitant]

REACTIONS (2)
  - Pneumonia [Unknown]
  - Off label use [Not Recovered/Not Resolved]

NARRATIVE: CASE EVENT DATE: 20200220
